FAERS Safety Report 19710779 (Version 2)
Quarter: 2022Q1

REPORT INFORMATION
  Report Type: Spontaneous
  Country: CA (occurrence: None)
  Receive Date: 20210817
  Receipt Date: 20220106
  Transmission Date: 20220423
  Serious: Yes (Other)
  Sender: FDA-Public Use
  Company Number: 2021A674149

PATIENT
  Age: 34 Year
  Sex: Female

DRUGS (4)
  1. QUETIAPINE [Suspect]
     Active Substance: QUETIAPINE
     Indication: Bipolar II disorder
     Dosage: 50.0MG UNKNOWN
     Route: 065
  2. LAMOTRIGINE [Suspect]
     Active Substance: LAMOTRIGINE
     Indication: Bipolar II disorder
     Dosage: 150.0MG UNKNOWN
     Route: 065
  3. LITHIUM [Concomitant]
     Active Substance: LITHIUM
     Indication: Bipolar II disorder
     Dosage: 600.0MG UNKNOWN
     Route: 065
  4. ZOPICLONE [Concomitant]
     Active Substance: ZOPICLONE
     Indication: Bipolar II disorder
     Dosage: 7.5MG UNKNOWN
     Route: 065

REACTIONS (2)
  - Obsessive-compulsive disorder [Recovered/Resolved]
  - Product use in unapproved indication [Unknown]
